FAERS Safety Report 23506218 (Version 1)
Quarter: 2024Q1

REPORT INFORMATION
  Report Type: Spontaneous
  Country: GB (occurrence: GB)
  Receive Date: 20240209
  Receipt Date: 20240209
  Transmission Date: 20240410
  Serious: Yes (Other)
  Sender: FDA-Public Use
  Company Number: None

PATIENT
  Age: 92 Year
  Sex: Female

DRUGS (16)
  1. PREDNISOLONE [Suspect]
     Active Substance: PREDNISOLONE
     Route: 065
  2. AMLODIPINE [Concomitant]
     Active Substance: AMLODIPINE BESYLATE
     Dosage: MORNING
  3. BISOPROLOL [Concomitant]
     Active Substance: BISOPROLOL\BISOPROLOL FUMARATE
     Dosage: MORNING, 2.5 MG DAILY
  4. FOLIC ACID [Concomitant]
     Active Substance: FOLIC ACID
  5. LANSOPRAZOLE [Concomitant]
     Active Substance: LANSOPRAZOLE
     Dosage: MORNING
  6. EZETIMIBE [Concomitant]
     Active Substance: EZETIMIBE
  7. NITROGLYCERIN [Concomitant]
     Active Substance: NITROGLYCERIN
     Indication: Chest pain
     Dosage: TIME INTERVAL: AS NECESSARY: SUBLINGUAL SPRAY, 400MICROGRAMS/DOSE. AND THEN CLOSE MOUTH AS DIRECTED
  8. CLOPIDOGREL [Concomitant]
     Active Substance: CLOPIDOGREL BISULFATE
     Dosage: MORNING
  9. ASPIRIN [Concomitant]
     Active Substance: ASPIRIN
     Dosage: MORNING
  10. ALFACALCIDOL [Concomitant]
     Active Substance: ALFACALCIDOL
     Dosage: MORNING
  11. ACETAMINOPHEN [Concomitant]
     Active Substance: ACETAMINOPHEN
     Dosage: 1-2 TABLETS FOUR TIMES A DAY
  12. ISOSORBIDE MONONITRATE [Concomitant]
     Active Substance: ISOSORBIDE MONONITRATE
     Dosage: MORNING
  13. ADCAL [Concomitant]
     Dosage: LUNCHTIME AND BEDTIME
  14. SODIUM BICARBONATE [Concomitant]
     Active Substance: SODIUM BICARBONATE
     Dosage: FIVE TO BE TAKEN EACH MORNING AND FOUR TO BE TAKEN AT TEATIME
  15. MIRABEGRON [Concomitant]
     Active Substance: MIRABEGRON
  16. SITAGLIPTIN [Concomitant]
     Active Substance: SITAGLIPTIN

REACTIONS (1)
  - Hyperglycaemia [Unknown]
